FAERS Safety Report 4620243-1 (Version None)
Quarter: 2005Q1

REPORT INFORMATION
  Report Type: 
  Country: None (occurrence: None)
  Receive Date: 20050321
  Receipt Date: 20050321
  Transmission Date: 20050727
  Serious: No
  Sender: FDA-Public Use
  Company Number: None

PATIENT
  Age: 44 Year
  Sex: Female
  Weight: 54.4316 kg

DRUGS (1)
  1. DOXEPIN HCL [Suspect]
     Dosage: 50 MG

REACTIONS (6)
  - ACCIDENTAL EXPOSURE [None]
  - DIZZINESS [None]
  - ERYTHEMA [None]
  - EYE SWELLING [None]
  - SWELLING [None]
  - SWELLING FACE [None]
